FAERS Safety Report 6788223-8 (Version None)
Quarter: 2010Q2

REPORT INFORMATION
  Report Type: 
  Country: None (occurrence: None)
  Receive Date: 20100623
  Receipt Date: 20080308
  Transmission Date: 20101027
  Serious: No
  Sender: FDA-Public Use
  Company Number: US-PFIZER INC-2008003476

PATIENT
  Sex: Female
  Weight: 73.48 kg

DRUGS (1)
  1. ERAXIS [Suspect]

REACTIONS (2)
  - ACCIDENTAL EXPOSURE [None]
  - BURNING SENSATION [None]
